FAERS Safety Report 5211754-9 (Version None)
Quarter: 2007Q1

REPORT INFORMATION
  Report Type: 
  Country: None (occurrence: None)
  Receive Date: 20070118
  Receipt Date: 20070109
  Transmission Date: 20070707
  Serious: Yes (Hospitalization)
  Sender: FDA-Public Use
  Company Number: PHRM2007FR00482

PATIENT
  Age: 81 Year
  Sex: Female

DRUGS (5)
  1. TOFRANIL [Suspect]
     Dosage: 3 DF, QD
     Route: 048
  2. ALDACTONE [Suspect]
     Route: 048
     Dates: end: 20061121
  3. QUITAXON [Suspect]
     Dosage: 1 DF, QD
     Route: 048
  4. ASPIRIN [Suspect]
     Dosage: 75 MG, QD
     Route: 048
  5. TEMESTA [Suspect]
     Dosage: 2.5 MG, QD
     Route: 048

REACTIONS (1)
  - HYPONATRAEMIA [None]
